FAERS Safety Report 12493323 (Version 2)
Quarter: 2016Q4

REPORT INFORMATION
  Report Type: Spontaneous
  Country: FR (occurrence: FR)
  Receive Date: 20160623
  Receipt Date: 20161024
  Transmission Date: 20170207
  Serious: Yes (Hospitalization)
  Sender: FDA-Public Use
  Company Number: FR-009507513-1606FRA007783

PATIENT
  Age: 69 Year
  Sex: Male

DRUGS (12)
  1. JANUMET [Suspect]
     Active Substance: METFORMIN HYDROCHLORIDE\SITAGLIPTIN PHOSPHATE
     Dosage: 1 DF, QD
     Route: 048
     Dates: start: 20140722
  2. JANUMET [Suspect]
     Active Substance: METFORMIN HYDROCHLORIDE\SITAGLIPTIN PHOSPHATE
     Dosage: 2 DF, QD
     Route: 048
     Dates: start: 20160722
  3. LASILIX [Suspect]
     Active Substance: FUROSEMIDE
     Dosage: 2 DF PER DAY
     Route: 048
     Dates: end: 20140720
  4. CARDENSIEL [Concomitant]
     Active Substance: BISOPROLOL FUMARATE
  5. TAHOR [Concomitant]
     Active Substance: ATORVASTATIN CALCIUM
  6. JANUMET [Suspect]
     Active Substance: METFORMIN HYDROCHLORIDE\SITAGLIPTIN PHOSPHATE
     Dosage: 1 DF PER DAY
     Route: 048
     Dates: end: 20140720
  7. LYRICA [Concomitant]
     Active Substance: PREGABALIN
  8. INEXIUM (ESOMEPRAZOLE MAGNESIUM) [Concomitant]
     Active Substance: ESOMEPRAZOLE MAGNESIUM
     Dosage: GASTRO-RESISTANT TABLETS
  9. KARDEGIC [Concomitant]
     Active Substance: ASPIRIN LYSINE
  10. JANUMET [Suspect]
     Active Substance: METFORMIN HYDROCHLORIDE\SITAGLIPTIN PHOSPHATE
     Dosage: 1 DF, QD
     Route: 048
     Dates: start: 20140722
  11. TRIATEC (ACETAMINOPHEN (+) CAFFEINE, CITRATED (+) CODEINE PHOSPHATE) [Suspect]
     Active Substance: ACETAMINOPHEN\CAFFEINE\CODEINE PHOSPHATE
     Dosage: 1 DF, PER DAY
     Route: 048
     Dates: end: 20140720
  12. TOPALGIC LP [Concomitant]
     Active Substance: TRAMADOL

REACTIONS (2)
  - Acute kidney injury [Recovered/Resolved]
  - Hyperkalaemia [Recovered/Resolved]

NARRATIVE: CASE EVENT DATE: 20140720
